FAERS Safety Report 10012923 (Version 2)
Quarter: 2014Q1

REPORT INFORMATION
  Report Type: Report from Study
  Country: US (occurrence: US)
  Receive Date: 20140314
  Receipt Date: 20140314
  Transmission Date: 20141002
  Serious: Yes (Hospitalization)
  Sender: FDA-Public Use
  Company Number: US-PFIZER INC-2012115888

PATIENT
  Age: 35 Year
  Sex: Female
  Weight: 129 kg

DRUGS (6)
  1. TOFACITINIB CITRATE [Suspect]
     Indication: PSORIASIS
     Dosage: 10 MG, 2X/DAY
     Route: 048
     Dates: start: 20110825, end: 20120307
  2. HUMIRA [Suspect]
     Indication: PSORIASIS
     Dosage: 80 MG, SINGLE
     Route: 058
     Dates: start: 20120407, end: 20120407
  3. PREDNISONE [Suspect]
     Indication: DRUG HYPERSENSITIVITY
     Dosage: TAPER 60MG TO 20 MG
     Route: 048
     Dates: start: 20120319, end: 20120328
  4. ADVIL [Concomitant]
     Indication: HEADACHE
     Dosage: 200 MG, AS NEEDED
     Route: 048
     Dates: start: 20100820
  5. NUVARING [Concomitant]
     Indication: CONTRACEPTION
     Dosage: 1 DEVICE Q MONTH
     Route: 067
     Dates: start: 20100813
  6. HYDROXYZINE [Concomitant]
     Indication: DRUG HYPERSENSITIVITY
     Dosage: UNK
     Dates: start: 20120319

REACTIONS (1)
  - Staphylococcal sepsis [Recovered/Resolved]
